FAERS Safety Report 12433191 (Version 1)
Quarter: 2016Q2

REPORT INFORMATION
  Report Type: Spontaneous
  Country: US (occurrence: US)
  Receive Date: 20160603
  Receipt Date: 20160603
  Transmission Date: 20160815
  Serious: Yes (Other)
  Sender: FDA-Public Use
  Company Number: US-TEVA-664102USA

PATIENT
  Sex: Female

DRUGS (4)
  1. NALTREXONE [Concomitant]
     Active Substance: NALTREXONE
  2. COPAXONE [Suspect]
     Active Substance: GLATIRAMER ACETATE
     Indication: MULTIPLE SCLEROSIS
     Dosage: UNKNOWN FORM STRENGTH
     Route: 065
  3. AMPYRA [Concomitant]
     Active Substance: DALFAMPRIDINE
     Indication: MULTIPLE SCLEROSIS
     Dates: start: 201605
  4. MODAFINIL. [Concomitant]
     Active Substance: MODAFINIL
     Dates: start: 201509

REACTIONS (6)
  - Multiple sclerosis relapse [Unknown]
  - Dysstasia [Unknown]
  - Feeling abnormal [Unknown]
  - Pain [Unknown]
  - Feeling hot [Unknown]
  - Pain in extremity [Unknown]
